FAERS Safety Report 14202015 (Version 1)
Quarter: 2017Q4

REPORT INFORMATION
  Report Type: Spontaneous
  Country: ES (occurrence: ES)
  Receive Date: 20171117
  Receipt Date: 20171117
  Transmission Date: 20180321
  Serious: Yes (Other)
  Sender: FDA-Public Use
  Company Number: ES-GILEAD-2017-0305384

PATIENT
  Age: 50 Year
  Sex: Female

DRUGS (2)
  1. NEVIRAPINE. [Concomitant]
     Active Substance: NEVIRAPINE
  2. TRUVADA [Suspect]
     Active Substance: EMTRICITABINE\TENOFOVIR DISOPROXIL FUMARATE
     Indication: PRODUCT USED FOR UNKNOWN INDICATION
     Dosage: UNK
     Route: 065
     Dates: end: 20171101

REACTIONS (1)
  - Myocardial ischaemia [Unknown]
